FAERS Safety Report 21125421 (Version 1)
Quarter: 2022Q3

REPORT INFORMATION
  Report Type: Report from Study
  Country: US (occurrence: US)
  Receive Date: 20220725
  Receipt Date: 20220725
  Transmission Date: 20221026
  Serious: No
  Sender: FDA-Public Use
  Company Number: US-GSK-US2021GSK136900

PATIENT

DRUGS (4)
  1. BELANTAMAB MAFODOTIN [Suspect]
     Active Substance: BELANTAMAB MAFODOTIN
     Indication: Plasma cell myeloma
     Dosage: 253 MG, CYC
     Route: 042
  2. BELANTAMAB MAFODOTIN [Suspect]
     Active Substance: BELANTAMAB MAFODOTIN
     Dosage: 253 MG, CYC
     Route: 042
  3. BELANTAMAB MAFODOTIN [Suspect]
     Active Substance: BELANTAMAB MAFODOTIN
     Dosage: 194 MG, CYC
     Route: 042
  4. BELANTAMAB MAFODOTIN [Suspect]
     Active Substance: BELANTAMAB MAFODOTIN
     Dosage: 194 MG CYC
     Route: 042

REACTIONS (10)
  - Vision blurred [Recovered/Resolved]
  - Blepharitis [Recovered/Resolved]
  - Keratitis [Recovered/Resolved]
  - Keratitis [Recovered/Resolved]
  - Blepharitis [Not Recovered/Not Resolved]
  - Keratitis [Not Recovered/Not Resolved]
  - Vision blurred [Recovered/Resolved]
  - Corneal epithelial microcysts [Recovered/Resolved]
  - Corneal epithelial microcysts [Recovered/Resolved]
  - Visual acuity reduced [Unknown]

NARRATIVE: CASE EVENT DATE: 20200526
